FAERS Safety Report 23545019 (Version 1)
Quarter: 2024Q1

REPORT INFORMATION
  Report Type: Spontaneous
  Country: ES (occurrence: ES)
  Receive Date: 20240220
  Receipt Date: 20240220
  Transmission Date: 20240410
  Serious: Yes (Hospitalization, Other)
  Sender: FDA-Public Use
  Company Number: None

PATIENT
  Age: 68 Year
  Sex: Male
  Weight: 85 kg

DRUGS (7)
  1. LINEZOLID [Suspect]
     Active Substance: LINEZOLID
     Indication: Pneumonia
     Dosage: FORM OF ADMIN: SOLUTION FOR INJECTION
     Route: 042
     Dates: start: 20230902, end: 20230911
  2. PIPERACILLIN SODIUM\TAZOBACTAM SODIUM [Suspect]
     Active Substance: PIPERACILLIN SODIUM\TAZOBACTAM SODIUM
     Indication: Pneumonia
     Dosage: FORM OF ADMIN: SOLUTION FOR INJECTION
     Route: 042
     Dates: start: 20230831, end: 20231109
  3. MEROPENEM [Suspect]
     Active Substance: MEROPENEM
     Indication: Pneumonia
     Dosage: FORM OF ADMIN: SOLUTION FOR INJECTION
     Route: 042
     Dates: start: 20230905, end: 20230914
  4. LEVOFLOXACIN [Suspect]
     Active Substance: LEVOFLOXACIN
     Indication: Pneumonia
     Dosage: 500 MG?ORAL
     Dates: start: 20230831, end: 20230901
  5. TOBRAMYCIN SULFATE [Suspect]
     Active Substance: TOBRAMYCIN SULFATE
     Indication: Pneumonia
     Dosage: 395  MG?SOLUTION FOR INJECTION?INTRAVENOUS
     Dates: start: 20230905, end: 20230914
  6. AMOXICILLIN\CLAVULANIC ACID [Suspect]
     Active Substance: AMOXICILLIN\CLAVULANIC ACID
     Indication: Pneumonia
     Dosage: 1 DOSAGE FORM?INTRAVENOUS
     Dates: start: 20230826, end: 20230901
  7. VORICONAZOLE [Suspect]
     Active Substance: VORICONAZOLE
     Indication: Bronchopulmonary aspergillosis
     Dates: start: 20230908, end: 20230918

REACTIONS (2)
  - Hepatocellular injury [Not Recovered/Not Resolved]
  - Hallucination, visual [Recovered/Resolved]

NARRATIVE: CASE EVENT DATE: 20230913
